FAERS Safety Report 8838666 (Version 1)
Quarter: 2012Q4

REPORT INFORMATION
  Report Type: 
  Country: DK (occurrence: CA)
  Receive Date: 20121012
  Receipt Date: 20121012
  Transmission Date: 20130627
  Serious: Yes (Other)
  Sender: FDA-Public Use
  Company Number: CA-FRI-1000039400

PATIENT
  Age: 31 Year
  Sex: Male

DRUGS (1)
  1. ESCITALOPRAM [Suspect]
     Route: 048

REACTIONS (7)
  - Serotonin syndrome [Recovered/Resolved]
  - Diarrhoea [Recovered/Resolved]
  - Disorientation [Recovered/Resolved]
  - Dizziness [Recovered/Resolved]
  - Euphoric mood [Recovered/Resolved]
  - Nausea [Recovered/Resolved]
  - Speech disorder [Recovered/Resolved]
